FAERS Safety Report 21037736 (Version 5)
Quarter: 2024Q2

REPORT INFORMATION
  Report Type: Spontaneous
  Country: JP (occurrence: JP)
  Receive Date: 20220704
  Receipt Date: 20240528
  Transmission Date: 20240715
  Serious: Yes (Hospitalization)
  Sender: FDA-Public Use
  Company Number: JP-JNJFOC-20220656393

PATIENT
  Age: 8 Decade
  Sex: Female
  Weight: 45 kg

DRUGS (5)
  1. STELARA [Suspect]
     Active Substance: USTEKINUMAB
     Indication: Crohn^s disease
     Route: 041
     Dates: start: 20180706, end: 20180706
  2. STELARA [Suspect]
     Active Substance: USTEKINUMAB
     Route: 058
     Dates: start: 20180831, end: 20220329
  3. CELECOXIB [Concomitant]
     Active Substance: CELECOXIB
     Route: 048
     Dates: end: 20210817
  4. BROTIZOLAM [Concomitant]
     Active Substance: BROTIZOLAM
     Indication: Insomnia
     Dosage: P.R.N
     Route: 048
  5. MERCAPTOPURINE [Concomitant]
     Active Substance: MERCAPTOPURINE
     Route: 048
     Dates: start: 20140228, end: 20190416

REACTIONS (1)
  - T-cell lymphoma [Recovered/Resolved]

NARRATIVE: CASE EVENT DATE: 20200305
